FAERS Safety Report 8115534-6 (Version None)
Quarter: 2012Q1

REPORT INFORMATION
  Report Type: 
  Country: None (occurrence: None)
  Receive Date: 20120206
  Receipt Date: 20120125
  Transmission Date: 20120608
  Serious: Yes (Hospitalization)
  Sender: FDA-Public Use
  Company Number: US-ELI_LILLY_AND_COMPANY-US201201008130

PATIENT
  Sex: Female

DRUGS (1)
  1. ADCIRCA [Suspect]
     Dosage: 40 MG, QD

REACTIONS (1)
  - LOSS OF CONSCIOUSNESS [None]
